FAERS Safety Report 24001422 (Version 2)
Quarter: 2024Q3

REPORT INFORMATION
  Report Type: Spontaneous
  Country: CO (occurrence: CO)
  Receive Date: 20240621
  Receipt Date: 20240702
  Transmission Date: 20241016
  Serious: No
  Sender: BAYER
  Company Number: CO-BAYER-2024A088147

PATIENT
  Age: 44 Year
  Sex: Female

DRUGS (3)
  1. MIRENA [Suspect]
     Active Substance: LEVONORGESTREL
     Indication: Pain
     Dosage: 20?G/DAY
     Route: 015
     Dates: start: 20240614
  2. IBUPROFEN [Concomitant]
     Active Substance: IBUPROFEN
     Indication: Pain
  3. IBUPROFEN [Concomitant]
     Active Substance: IBUPROFEN
     Indication: Inflammation

REACTIONS (5)
  - Procedural pain [Not Recovered/Not Resolved]
  - Abdominal distension [Not Recovered/Not Resolved]
  - Procedural haemorrhage [Not Recovered/Not Resolved]
  - Off label use [None]
  - Device use issue [None]

NARRATIVE: CASE EVENT DATE: 20240614
